FAERS Safety Report 22899342 (Version 2)
Quarter: 2023Q4

REPORT INFORMATION
  Report Type: Spontaneous
  Country: JP (occurrence: JP)
  Receive Date: 20230904
  Receipt Date: 20231019
  Transmission Date: 20240110
  Serious: Yes (Death, Other)
  Sender: FDA-Public Use
  Company Number: JP-CHUGAI-2023030991

PATIENT
  Age: 10 Decade
  Sex: Male

DRUGS (3)
  1. HEMLIBRA [Suspect]
     Active Substance: EMICIZUMAB-KXWH
     Indication: Acquired haemophilia
     Dosage: 6 MILLIGRAM/KILOGRAM, SINGLE
     Route: 065
     Dates: start: 20230719, end: 20230719
  2. HEMLIBRA [Suspect]
     Active Substance: EMICIZUMAB-KXWH
     Dosage: 3 MILLIGRAM/KILOGRAM, SINGLE
     Route: 065
     Dates: start: 20230720, end: 20230720
  3. HEMLIBRA [Suspect]
     Active Substance: EMICIZUMAB-KXWH
     Dosage: 1.5 MILLIGRAM, ONCE/WEEK
     Route: 065
     Dates: start: 20230727, end: 20230803

REACTIONS (4)
  - Pneumonia [Fatal]
  - Pulmonary sepsis [Fatal]
  - Cytopenia [Fatal]
  - Haemophagocytic lymphohistiocytosis [Unknown]

NARRATIVE: CASE EVENT DATE: 20230801
